FAERS Safety Report 8270774-0 (Version None)
Quarter: 2012Q2

REPORT INFORMATION
  Report Type: 
  Country: None (occurrence: None)
  Receive Date: 20120410
  Receipt Date: 20120326
  Transmission Date: 20120825
  Serious: Yes (Death, Hospitalization, Other)
  Sender: FDA-Public Use
  Company Number: JP-ROCHE-1017381

PATIENT
  Sex: Male
  Weight: 50 kg

DRUGS (16)
  1. CARBOPLATIN [Concomitant]
     Route: 041
     Dates: start: 20111111, end: 20111111
  2. PACLITAXEL [Concomitant]
     Route: 041
     Dates: start: 20111111, end: 20111111
  3. LOXONIN [Concomitant]
     Route: 048
     Dates: start: 20110630
  4. ASPIRIN [Suspect]
     Indication: PRODUCT USED FOR UNKNOWN INDICATION
     Route: 048
     Dates: start: 20110630, end: 20111111
  5. PACLITAXEL [Concomitant]
     Indication: LUNG ADENOCARCINOMA METASTATIC
     Route: 041
     Dates: start: 20111012, end: 20111028
  6. ZOLPIDEM [Concomitant]
     Route: 048
     Dates: start: 20110630
  7. MUCODYNE [Concomitant]
     Route: 048
     Dates: start: 20110630
  8. AVASTIN [Suspect]
     Indication: NON-SMALL CELL LUNG CANCER
     Route: 041
     Dates: start: 20111012, end: 20111012
  9. AVASTIN [Suspect]
     Indication: LUNG ADENOCARCINOMA METASTATIC
     Route: 041
     Dates: start: 20111111, end: 20111111
  10. ISOSORBIDE MONONITRATE [Concomitant]
     Route: 048
     Dates: start: 20110630
  11. MUCOSTA [Concomitant]
     Route: 048
     Dates: start: 20110630
  12. CARBOPLATIN [Concomitant]
     Indication: LUNG ADENOCARCINOMA METASTATIC
     Route: 041
     Dates: start: 20111012, end: 20111012
  13. IRESSA [Concomitant]
     Indication: LUNG ADENOCARCINOMA METASTATIC
     Dosage: DOSAGE IS UNCERTAIN.
     Route: 048
     Dates: end: 20110826
  14. CODEINE PHOSPHATE [Concomitant]
     Route: 048
     Dates: start: 20110630
  15. ALLOPURINOL [Concomitant]
     Route: 048
     Dates: start: 20110630
  16. PRAVASTATIN SODIUM [Concomitant]
     Route: 048
     Dates: start: 20110630

REACTIONS (3)
  - HAEMOPTYSIS [None]
  - VENTRICULAR FIBRILLATION [None]
  - PNEUMOPERICARDIUM [None]
